FAERS Safety Report 21302630 (Version 1)
Quarter: 2022Q3

REPORT INFORMATION
  Report Type: Spontaneous
  Country: SE (occurrence: SE)
  Receive Date: 20220907
  Receipt Date: 20220907
  Transmission Date: 20221026
  Serious: Yes (Life-Threatening)
  Sender: FDA-Public Use
  Company Number: None

PATIENT
  Age: 61 Year
  Sex: Male

DRUGS (24)
  1. TAFINLAR [Suspect]
     Active Substance: DABRAFENIB MESYLATE
     Indication: Papillary thyroid cancer
     Dosage: 300 MG, QD
     Route: 048
     Dates: start: 20210924, end: 20220428
  2. TAFINLAR [Suspect]
     Active Substance: DABRAFENIB MESYLATE
     Dosage: 300 MG, QD
     Route: 048
     Dates: start: 2022, end: 202208
  3. MEKINIST [Suspect]
     Active Substance: TRAMETINIB DIMETHYL SULFOXIDE
     Indication: Product used for unknown indication
     Dosage: 2 MG, QD
     Route: 065
     Dates: end: 20220428
  4. MEKINIST [Suspect]
     Active Substance: TRAMETINIB DIMETHYL SULFOXIDE
     Dosage: 1 UNK, QD
     Route: 065
     Dates: start: 2022, end: 202208
  5. MELATONIN [Concomitant]
     Active Substance: MELATONIN
     Indication: Product used for unknown indication
     Dosage: 50 MG, QD (DEPOTTABLET)
     Route: 065
  6. FENTANYL [Concomitant]
     Active Substance: FENTANYL
     Indication: Product used for unknown indication
     Dosage: 1 UNK  (2 CARE4 25 MIKROGRAM/ TIMME DEPOTPLASTER
     Route: 065
  7. OXYCODONE ORIFARM [Concomitant]
     Indication: Product used for unknown indication
     Dosage: 15 ML, QD (CONCENTRATION: 1 MG/ML,  ORAL LOSNING)
     Route: 065
  8. ACETAMINOPHEN [Concomitant]
     Active Substance: ACETAMINOPHEN
     Indication: Product used for unknown indication
     Dosage: 120 ML, QD (ORAL LOSNING)
     Route: 065
  9. LIDOCAINI HYDROCHLORIDUM [Concomitant]
     Indication: Product used for unknown indication
     Dosage: UNK (VID BEHOV MAX 15 ML X 3-4/DYGN) (CONCENTRATION:  I ORAL CLEANER APL  5 MG/ML  MUNSKOLJVATSKA)
     Route: 065
  10. ONDANSETRON HYDROCHLORIDE [Concomitant]
     Active Substance: ONDANSETRON HYDROCHLORIDE
     Indication: Product used for unknown indication
     Dosage: 4 MG (1-2 TABLETTER VID BEHOV) (FILMDRAGERAD TABLETT)
     Route: 065
  11. SODIUM PICOSULFATE [Concomitant]
     Active Substance: SODIUM PICOSULFATE
     Indication: Product used for unknown indication
     Dosage: UNK (10 DROPPAR TILL KV?LLEN VID BEHOV) ( 7,5 MG/ML ORALA DROPPAR, LOSNING)
     Route: 065
  12. ALPRAZOLAM [Concomitant]
     Active Substance: ALPRAZOLAM
     Indication: Product used for unknown indication
     Dosage: UNK (1-2 TABLETTER VID BEHOV)
     Route: 065
  13. CANDESARSTAD [Concomitant]
     Indication: Product used for unknown indication
     Dosage: 8 MG, QD
     Route: 065
  14. OXYCODONE HYDROCHLORIDE [Concomitant]
     Active Substance: OXYCODONE HYDROCHLORIDE
     Indication: Product used for unknown indication
     Dosage: 5 ML (1 MG/ML, ORAL LOSNING)
     Route: 065
  15. ZOPIKLON PILUM [Concomitant]
     Indication: Product used for unknown indication
     Dosage: 7.5 MG (FILMDRAGERAD TABLETT)
     Route: 065
  16. LEVOTHYROXINE SODIUM [Concomitant]
     Active Substance: LEVOTHYROXINE SODIUM
     Indication: Product used for unknown indication
     Dosage: 200 UG, QD
     Route: 065
  17. NEXIUM [Concomitant]
     Active Substance: ESOMEPRAZOLE MAGNESIUM
     Indication: Product used for unknown indication
     Dosage: 20 MG, QD (ENTEROTABLETT)
     Route: 065
  18. OXYCODONE HYDROCHLORIDE [Concomitant]
     Active Substance: OXYCODONE HYDROCHLORIDE
     Indication: Product used for unknown indication
     Dosage: 5 MG
     Route: 065
  19. PRIMPERAN [Concomitant]
     Active Substance: METOCLOPRAMIDE HYDROCHLORIDE
     Indication: Product used for unknown indication
     Dosage: 30 MG
     Route: 065
  20. NYSTATIN [Concomitant]
     Active Substance: NYSTATIN
     Indication: Product used for unknown indication
     Dosage: 12 ML, QD (100000 IE/ ML)
     Route: 065
  21. DIFLUCAN [Concomitant]
     Active Substance: FLUCONAZOLE
     Indication: Product used for unknown indication
     Dosage: 5 ML, QD (10 MG/ML PULVER TILL ORAL SUSPENSION)
     Route: 065
  22. BISOLVON [Concomitant]
     Active Substance: BROMHEXINE HYDROCHLORIDE
     Indication: Product used for unknown indication
     Dosage: 10 ML, QD (0.8 MG/ML LOSNING)
     Route: 065
  23. MOVICOL [Concomitant]
     Active Substance: POLYETHYLENE GLYCOL 3350\POTASSIUM CHLORIDE\SODIUM BICARBONATE\SODIUM CHLORIDE
     Indication: Product used for unknown indication
     Dosage: 2 UNK (ORAL LOSNING I DOSPASE)
     Route: 065
  24. PREGABALIN ORION [Concomitant]
     Indication: Product used for unknown indication
     Dosage: 150 MG, QD
     Route: 065

REACTIONS (2)
  - Respiratory disorder [Not Recovered/Not Resolved]
  - Epiglottitis [Recovering/Resolving]

NARRATIVE: CASE EVENT DATE: 20220428
